FAERS Safety Report 4596833-1 (Version None)
Quarter: 2005Q1

REPORT INFORMATION
  Report Type: 
  Country: None (occurrence: None)
  Receive Date: 20050302
  Receipt Date: 19941018
  Transmission Date: 20050727
  Serious: Yes (Life-Threatening, Hospitalization)
  Sender: FDA-Public Use
  Company Number: US-GLAXOSMITHKLINE-A0233475A

PATIENT
  Age: 65 Year
  Sex: Female
  Weight: 62.36 kg

DRUGS (5)
  1. RELAFEN [Suspect]
     Dosage: 500MG TWICE PER DAY
     Route: 048
     Dates: start: 19940101, end: 19940101
  2. PREMARIN [Concomitant]
  3. PROVERA [Concomitant]
  4. VASOTEC [Concomitant]
  5. AMOXICILLIN [Concomitant]

REACTIONS (14)
  - BACTERAEMIA [None]
  - BURN OF INTERNAL ORGANS [None]
  - CARDIAC FAILURE CONGESTIVE [None]
  - CONJUNCTIVITIS [None]
  - EYE PAIN [None]
  - PLEURAL EFFUSION [None]
  - PRURITUS [None]
  - SCAB [None]
  - SKIN INFLAMMATION [None]
  - SKIN ULCER [None]
  - STEVENS-JOHNSON SYNDROME [None]
  - THERMAL BURN [None]
  - TOXIC EPIDERMAL NECROLYSIS [None]
  - UPPER RESPIRATORY TRACT INFECTION [None]
